FAERS Safety Report 25371221 (Version 1)
Quarter: 2025Q2

REPORT INFORMATION
  Report Type: Report from Study
  Country: US (occurrence: US)
  Receive Date: 20250529
  Receipt Date: 20250529
  Transmission Date: 20250717
  Serious: No
  Sender: SANDOZ
  Company Number: US-SANDOZ-SDZ2025US036859

PATIENT
  Age: 13 Year
  Sex: Male

DRUGS (2)
  1. OMNITROPE [Suspect]
     Active Substance: SOMATROPIN
     Indication: Hypopituitarism
     Dosage: 1.9 MG, QD
     Route: 058
     Dates: start: 202504
  2. OMNITROPE [Suspect]
     Active Substance: SOMATROPIN
     Indication: Hypopituitarism
     Dosage: 1.9 MG, QD
     Route: 058
     Dates: start: 202504

REACTIONS (3)
  - Cough [Unknown]
  - Seasonal allergy [Unknown]
  - Device issue [Unknown]

NARRATIVE: CASE EVENT DATE: 20250501
